FAERS Safety Report 9129784 (Version 1)
Quarter: 2013Q1

REPORT INFORMATION
  Report Type: Spontaneous
  Country: CA (occurrence: CA)
  Receive Date: 20130125
  Receipt Date: 20130125
  Transmission Date: 20140127
  Serious: Yes (Life-Threatening, Hospitalization)
  Sender: FDA-Public Use
  Company Number: CA-B.I. PHARMACEUTICALS,INC./RIDGEFIELD-2013-CN-00104CN

PATIENT
  Age: 68 Year
  Sex: Female

DRUGS (2)
  1. PRADAX [Suspect]
     Route: 065
  2. NAPROXEN [Suspect]
     Route: 065

REACTIONS (6)
  - Bronchial haemorrhage [Unknown]
  - Cardiac failure congestive [Unknown]
  - Epistaxis [Unknown]
  - Gastrointestinal haemorrhage [Unknown]
  - Hypotension [Unknown]
  - Renal failure [Unknown]
